FAERS Safety Report 11342521 (Version 1)
Quarter: 2015Q3

REPORT INFORMATION
  Report Type: Spontaneous
  Country: DE (occurrence: DE)
  Receive Date: 20150805
  Receipt Date: 20150805
  Transmission Date: 20151125
  Serious: Yes (Hospitalization)
  Sender: FDA-Public Use
  Company Number: DE-TEVA-582738GER

PATIENT
  Age: 68 Year
  Sex: Female

DRUGS (9)
  1. CIPRALEX [Suspect]
     Active Substance: ESCITALOPRAM OXALATE
     Indication: DEPRESSION
     Dosage: 5 DOSAGE FORMS DAILY;
     Dates: start: 20100618, end: 20100624
  2. METOPROLOL [Interacting]
     Active Substance: METOPROLOL
     Dosage: 100 DOSAGE FORMS DAILY;
  3. REMERGIL [Interacting]
     Active Substance: MIRTAZAPINE
     Dosage: 45 DOSAGE FORMS DAILY;
  4. EVISTA [Concomitant]
     Active Substance: RALOXIFENE HYDROCHLORIDE
     Dosage: 60 DOSAGE FORMS DAILY;
  5. L-THYROXIN [Concomitant]
     Active Substance: LEVOTHYROXINE SODIUM
     Dosage: .075 DOSAGE FORMS DAILY;
  6. LORAZEPAM. [Concomitant]
     Active Substance: LORAZEPAM
     Dosage: 1 DOSAGE FORMS DAILY;
     Dates: start: 20100518
  7. HCT [Interacting]
     Active Substance: HYDROCHLOROTHIAZIDE
     Dosage: 25 DOSAGE FORMS DAILY;
  8. CALCIUM CARBONATE. [Concomitant]
     Active Substance: CALCIUM CARBONATE
     Dosage: 1500 DOSAGE FORMS DAILY;
  9. QUETIAPIN RETARD [Interacting]
     Active Substance: QUETIAPINE
     Dosage: 400 DOSAGE FORMS DAILY;
     Dates: start: 20100513

REACTIONS (2)
  - Dystonia [Recovered/Resolved]
  - Drug interaction [Recovered/Resolved]

NARRATIVE: CASE EVENT DATE: 20100622
